FAERS Safety Report 7233054-8 (Version None)
Quarter: 2011Q1

REPORT INFORMATION
  Report Type: 
  Country: None (occurrence: None)
  Receive Date: 20110119
  Receipt Date: 20110105
  Transmission Date: 20110831
  Serious: No
  Sender: FDA-Public Use
  Company Number: US-B.I. PHARMACEUTICALS,INC./RIDGEFIELD-2010-BP-06938BP

PATIENT
  Sex: Female

DRUGS (4)
  1. SPIRIVA [Suspect]
     Indication: CHRONIC OBSTRUCTIVE PULMONARY DISEASE
     Dosage: 18 MCG
     Route: 055
     Dates: start: 20080601
  2. COMBIVENT [Concomitant]
     Indication: CHRONIC OBSTRUCTIVE PULMONARY DISEASE
     Route: 055
  3. UNIVASC [Concomitant]
     Indication: HYPERTENSION
     Dosage: 15 MG
     Route: 048
  4. EXFORGE [Suspect]
     Indication: HYPERTENSION
     Route: 048
     Dates: start: 20091201

REACTIONS (9)
  - HYPERTENSION [None]
  - PANIC ATTACK [None]
  - CHRONIC OBSTRUCTIVE PULMONARY DISEASE [None]
  - DIZZINESS [None]
  - DYSPHAGIA [None]
  - SWOLLEN TONGUE [None]
  - CYSTITIS [None]
  - ASTHENIA [None]
  - DECREASED APPETITE [None]
